FAERS Safety Report 20225873 (Version 2)
Quarter: 2022Q1

REPORT INFORMATION
  Report Type: Spontaneous
  Country: JP (occurrence: JP)
  Receive Date: 20211224
  Receipt Date: 20220107
  Transmission Date: 20220423
  Serious: Yes (Hospitalization)
  Sender: FDA-Public Use
  Company Number: JP-JNJFOC-20211250273

PATIENT

DRUGS (3)
  1. REMINYL [Suspect]
     Active Substance: GALANTAMINE
     Indication: Product used for unknown indication
     Route: 048
  2. REMINYL [Suspect]
     Active Substance: GALANTAMINE
     Route: 048
  3. REMINYL [Suspect]
     Active Substance: GALANTAMINE
     Route: 048

REACTIONS (3)
  - Cardiac dysfunction [Recovered/Resolved]
  - Inappropriate schedule of product administration [Unknown]
  - Off label use [Unknown]
